FAERS Safety Report 5545255-5 (Version None)
Quarter: 2007Q4

REPORT INFORMATION
  Report Type: 
  Country: None (occurrence: None)
  Receive Date: 20071123
  Receipt Date: 20070518
  Transmission Date: 20080405
  Serious: Yes (Hospitalization)
  Sender: FDA-Public Use
  Company Number: 2007041567

PATIENT
  Age: 48 Year
  Sex: Female

DRUGS (4)
  1. LOMOTIL [Suspect]
     Dates: start: 20070301
  2. BELLADONNA EXTRACT (BELLADONNA EXTRACT) [Suspect]
     Dates: start: 20070301
  3. LAPATINIB (LAPATINIB) [Suspect]
     Indication: BREAST CANCER METASTATIC
     Dosage: 2500 MG (1250 MG, 2 IN 1 D), ORAL
     Route: 048
     Dates: start: 20070315
  4. CAPECITABINE (CAPECITABINE) [Suspect]
     Indication: BREAST CANCER METASTATIC
     Dosage: 3600 MG (1800 MG, 2 IN 1 D), ORAL
     Route: 048
     Dates: start: 20070315

REACTIONS (3)
  - ABDOMINAL PAIN [None]
  - NAUSEA [None]
  - VOMITING [None]
